FAERS Safety Report 20864924 (Version 1)
Quarter: 2022Q2

REPORT INFORMATION
  Report Type: Spontaneous
  Country: IL (occurrence: IL)
  Receive Date: 20220524
  Receipt Date: 20220524
  Transmission Date: 20220720
  Serious: Yes (Hospitalization)
  Sender: FDA-Public Use
  Company Number: IL-BRISTOL-MYERS SQUIBB COMPANY-2022-042234

PATIENT
  Age: 72 Year
  Sex: Male

DRUGS (16)
  1. ELIQUIS [Suspect]
     Active Substance: APIXABAN
     Indication: Cerebrovascular accident prophylaxis
  2. XULTOPHY 100/3.6 [Concomitant]
     Active Substance: INSULIN DEGLUDEC\LIRAGLUTIDE
     Indication: Product used for unknown indication
     Dosage: INS, 100U/ML+3.6MG/ML PEN 0
  3. CLOTHIAPINE [Concomitant]
     Active Substance: CLOTHIAPINE
     Indication: Product used for unknown indication
  4. METFORMIN HYDROCHLORIDE [Concomitant]
     Active Substance: METFORMIN HYDROCHLORIDE
     Indication: Product used for unknown indication
     Dosage: CPL 850 MG ORAL 850 MG
     Route: 048
  5. HUMALOG [Concomitant]
     Active Substance: INSULIN LISPRO
     Indication: Product used for unknown indication
     Dosage: INS HUMALOG KWIK PEN 200 UNIT /1ML
  6. MESTINON [Concomitant]
     Active Substance: PYRIDOSTIGMINE BROMIDE
     Indication: Product used for unknown indication
     Dosage: DRAGEE
  7. SEROQUEL [Concomitant]
     Active Substance: QUETIAPINE FUMARATE
     Indication: Product used for unknown indication
  8. SILVEROL [Concomitant]
     Indication: Product used for unknown indication
  9. CELLCEPT [Concomitant]
     Active Substance: MYCOPHENOLATE MOFETIL
     Indication: Product used for unknown indication
  10. PREDNISONE [Concomitant]
     Active Substance: PREDNISONE
     Indication: Product used for unknown indication
  11. PAMID [Concomitant]
     Indication: Product used for unknown indication
  12. BISOPROLOL FUMARATE [Concomitant]
     Active Substance: BISOPROLOL FUMARATE
     Indication: Product used for unknown indication
     Dosage: 5
  13. LIPITOR [Concomitant]
     Active Substance: ATORVASTATIN CALCIUM
     Indication: Product used for unknown indication
  14. LYRICA [Concomitant]
     Active Substance: PREGABALIN
     Indication: Product used for unknown indication
  15. CONTROLOC [Concomitant]
     Active Substance: PANTOPRAZOLE SODIUM
     Indication: Product used for unknown indication
  16. MIRO [MIRTAZAPINE] [Concomitant]
     Indication: Product used for unknown indication
     Dosage: 30

REACTIONS (5)
  - Asthenia [Unknown]
  - General physical health deterioration [Unknown]
  - Faeces discoloured [Unknown]
  - Dyspnoea [Unknown]
  - Haemoglobin decreased [Unknown]
